FAERS Safety Report 4868708-1 (Version None)
Quarter: 2005Q4

REPORT INFORMATION
  Report Type: 
  Country: None (occurrence: None)
  Receive Date: 20051223
  Receipt Date: 20051213
  Transmission Date: 20060501
  Serious: Yes (Other)
  Sender: FDA-Public Use
  Company Number: 2005168190

PATIENT
  Sex: Male
  Weight: 95.2554 kg

DRUGS (4)
  1. VIAGRA [Suspect]
     Indication: ERECTILE DYSFUNCTION
     Dosage: 100 MG (100 MG, AS NECESSARY); 2 YEARS AGO
  2. GABITRIL [Concomitant]
  3. BUSPAR [Concomitant]
  4. PAXIL CR [Concomitant]

REACTIONS (1)
  - DRUG INEFFECTIVE [None]
